FAERS Safety Report 7063639-3 (Version None)
Quarter: 2010Q4

REPORT INFORMATION
  Report Type: 
  Country: None (occurrence: None)
  Receive Date: 20101026
  Receipt Date: 20100813
  Transmission Date: 20110411
  Serious: No
  Sender: FDA-Public Use
  Company Number: US-ABBOTT-10P-163-0663863-00

PATIENT
  Sex: Female

DRUGS (3)
  1. LUPRON DEPOT [Suspect]
     Indication: PRODUCT USED FOR UNKNOWN INDICATION
  2. TAMOX [Concomitant]
     Indication: PRODUCT USED FOR UNKNOWN INDICATION
  3. RADIATION THERAPY [Concomitant]
     Indication: PRODUCT USED FOR UNKNOWN INDICATION

REACTIONS (5)
  - AMENORRHOEA [None]
  - CRYING [None]
  - FEELING HOT [None]
  - HOT FLUSH [None]
  - WEIGHT INCREASED [None]
